FAERS Safety Report 17879660 (Version 1)
Quarter: 2020Q2

REPORT INFORMATION
  Report Type: Spontaneous
  Country: US (occurrence: US)
  Receive Date: 20200610
  Receipt Date: 20200610
  Transmission Date: 20200714
  Serious: No
  Sender: FDA-Public Use
  Company Number: US-009507513-2006USA000420

PATIENT
  Age: 26 Year
  Sex: Female
  Weight: 47.17 kg

DRUGS (1)
  1. NEXPLANON [Suspect]
     Active Substance: ETONOGESTREL
     Dosage: NEXPLANON UNIT
     Route: 059
     Dates: start: 20200525, end: 20200525

REACTIONS (2)
  - Complication of device insertion [Unknown]
  - Product quality issue [Unknown]

NARRATIVE: CASE EVENT DATE: 20200525
